FAERS Safety Report 16044010 (Version 2)
Quarter: 2019Q2

REPORT INFORMATION
  Report Type: Spontaneous
  Country: US (occurrence: US)
  Receive Date: 20190306
  Receipt Date: 20190425
  Transmission Date: 20190711
  Serious: No
  Sender: FDA-Public Use
  Company Number: US-009507513-1902USA002558

PATIENT
  Age: 37 Year
  Sex: Female
  Weight: 155.56 kg

DRUGS (8)
  1. ALLEGRA ALLERGY [Concomitant]
     Active Substance: FEXOFENADINE HYDROCHLORIDE
     Dosage: 180 MG TABLET TAKE L TABLET BY ORAL ROUTE EVERY DAY
     Route: 048
     Dates: start: 20140912
  2. LISINOPRIL. [Concomitant]
     Active Substance: LISINOPRIL
     Dosage: 10 MG TABLET TAKE 1 TABLET BY ORAL ROUTE EVERY DAY
     Route: 048
     Dates: start: 20140723
  3. NEXPLANON [Suspect]
     Active Substance: ETONOGESTREL
     Dosage: 1 IMPANT
     Route: 059
     Dates: start: 20170803
  4. ALBUTEROL SULFATE. [Concomitant]
     Active Substance: ALBUTEROL SULFATE
     Dosage: 2.5 MG/3 ML (0.083 %) SOLUTION FOR NEBULIZATION ALLEGRA ALLERGY 180 MG TABLET INHALE 3 MILLILITER BY
     Dates: start: 20140912
  5. HYDROCHLOROTHIAZIDE. [Concomitant]
     Active Substance: HYDROCHLOROTHIAZIDE
     Dosage: 25 MG TABLET TAKE 1 TABLET (25 MG) BY ORAL ROUTE ONCE DAILY
     Route: 048
     Dates: start: 20140723
  6. VENTOLIN HFA [Concomitant]
     Active Substance: ALBUTEROL SULFATE
     Dosage: 90 MCG/ ACTUATION AEROSOL INHALER INHALE 2 PUFFS BY INHALATION ROUTE EVERY 4-6 HOURS PRN
     Dates: start: 20140723
  7. ADVAIR HFA [Concomitant]
     Active Substance: FLUTICASONE PROPIONATE\SALMETEROL XINAFOATE
     Dosage: 250 MCG-50 MCG/DOSE POWDER FOR INHALATION INHALE 1 PUFF BY INHALATION ROUTE 2 TIMES EVERY DAY IN THE
     Dates: start: 20150217
  8. CETIRIZINE HYDROCHLORIDE. [Concomitant]
     Active Substance: CETIRIZINE HYDROCHLORIDE
     Dosage: 10 MG TABLET TAKE 1 TABLET BY ORAL ROUTE EVERY DAY
     Route: 048
     Dates: start: 20150519

REACTIONS (1)
  - Complication associated with device [Unknown]

NARRATIVE: CASE EVENT DATE: 20190110
